FAERS Safety Report 7251586-3 (Version None)
Quarter: 2011Q1

REPORT INFORMATION
  Report Type: 
  Country: None (occurrence: None)
  Receive Date: 20110128
  Receipt Date: 20110117
  Transmission Date: 20110831
  Serious: Yes (Hospitalization)
  Sender: FDA-Public Use
  Company Number: CO-ELI_LILLY_AND_COMPANY-CO201012000888

PATIENT
  Age: 66 Year
  Sex: Female

DRUGS (11)
  1. ACETAMINOPHEN [Concomitant]
     Dosage: UNK, UNKNOWN
     Route: 065
  2. ENBREL [Concomitant]
     Dosage: UNK, UNKNOWN
     Route: 065
  3. FOLIC ACID [Concomitant]
     Dosage: UNK, UNKNOWN
     Route: 065
  4. LOVASTATIN [Concomitant]
     Dosage: UNK, UNKNOWN
     Route: 065
  5. JANUVIA [Concomitant]
     Dosage: UNK, UNKNOWN
     Route: 065
  6. METOPROLOL [Concomitant]
     Dosage: UNK, UNKNOWN
     Route: 065
  7. ASPIRIN [Concomitant]
     Dosage: UNK, UNKNOWN
     Route: 065
  8. METHOTREXATE [Concomitant]
     Dosage: UNK, UNKNOWN
     Route: 065
  9. FORTEO [Suspect]
     Indication: OSTEOPOROSIS
     Dosage: 20 UG, DAILY (1/D)
     Route: 058
     Dates: start: 20100611
  10. CLOPIDOGREL [Concomitant]
     Dosage: UNK, UNKNOWN
     Route: 065
  11. ENALAPRIL MALEATE [Concomitant]
     Dosage: UNK, UNKNOWN
     Route: 065

REACTIONS (2)
  - SKIN DISCOLOURATION [None]
  - CELLULITIS [None]
